FAERS Safety Report 14981762 (Version 1)
Quarter: 2018Q2

REPORT INFORMATION
  Report Type: Report from Study
  Country: ES (occurrence: ES)
  Receive Date: 20180607
  Receipt Date: 20180607
  Transmission Date: 20180711
  Serious: Yes (Hospitalization)
  Sender: FDA-Public Use
  Company Number: ES-ACCORD-067781

PATIENT
  Age: 68 Year
  Sex: Male

DRUGS (7)
  1. FLUOROURACIL. [Suspect]
     Active Substance: FLUOROURACIL
     Indication: RECTAL CANCER
     Dosage: INTRAVENOUS DRIP FROM 12-MAY-2016
     Route: 041
     Dates: start: 20160512, end: 20160512
  2. LEUCOVORIN. [Suspect]
     Active Substance: LEUCOVORIN
     Indication: RECTAL CANCER
     Route: 042
     Dates: start: 20160512, end: 20160512
  3. AFLIBERCEPT [Suspect]
     Active Substance: AFLIBERCEPT
     Indication: RECTAL CANCER
     Dosage: ALSO RECEIVED FROM 31-MAR-2016 TO 31-MAR-2016
     Route: 042
     Dates: start: 20160512, end: 20160512
  4. OXALIPLATIN. [Suspect]
     Active Substance: OXALIPLATIN
     Indication: RECTAL CANCER
     Dosage: UNSPECIFIED DOSE FROM 31-MAR-2016 TO 31-MAR-2016
     Route: 042
     Dates: start: 20160512, end: 20160512
  5. MONOPROST [Concomitant]
     Active Substance: LATANOPROST
     Dosage: DROPS
  6. ORFIDAL [Concomitant]
     Active Substance: LORAZEPAM
     Route: 065
  7. CAPECITABINE. [Suspect]
     Active Substance: CAPECITABINE
     Indication: RECTAL CANCER
     Route: 065

REACTIONS (1)
  - Febrile neutropenia [Recovered/Resolved]

NARRATIVE: CASE EVENT DATE: 20160526
